FAERS Safety Report 21113210 (Version 3)
Quarter: 2022Q3

REPORT INFORMATION
  Report Type: Report from Study
  Country: CO (occurrence: CO)
  Receive Date: 20220721
  Receipt Date: 20220903
  Transmission Date: 20221027
  Serious: Yes (Hospitalization, Other)
  Sender: FDA-Public Use
  Company Number: CO-SA-SAC20220720001037

PATIENT
  Age: 44 Year
  Sex: Male

DRUGS (2)
  1. IMIGLUCERASE [Suspect]
     Active Substance: IMIGLUCERASE
     Indication: Gaucher^s disease
     Dosage: 400 IU, Q15D
     Route: 042
     Dates: start: 20120528
  2. IMIGLUCERASE [Suspect]
     Active Substance: IMIGLUCERASE
     Dosage: 3200 IU, Q15D
     Route: 042
     Dates: start: 20170608

REACTIONS (9)
  - Road traffic accident [Recovering/Resolving]
  - Skull fracture [Recovering/Resolving]
  - Clavicle fracture [Recovering/Resolving]
  - Brain oedema [Recovering/Resolving]
  - Hip fracture [Recovering/Resolving]
  - Skin ulcer [Recovering/Resolving]
  - Pain [Recovering/Resolving]
  - Pyrexia [Unknown]
  - Chills [Unknown]

NARRATIVE: CASE EVENT DATE: 20220701
